FAERS Safety Report 9922605 (Version 1)
Quarter: 2014Q1

REPORT INFORMATION
  Report Type: Spontaneous
  Country: IT (occurrence: IT)
  Receive Date: 20140225
  Receipt Date: 20140225
  Transmission Date: 20141002
  Serious: Yes (Other)
  Sender: FDA-Public Use
  Company Number: IT-TEVA-462928ISR

PATIENT
  Age: 41 Year
  Sex: Female
  Weight: 46 kg

DRUGS (3)
  1. PACLITAXEL TEVA [Suspect]
     Indication: BREAST CANCER
     Dosage: 110 MILLIGRAM DAILY;
     Route: 042
     Dates: start: 20140207, end: 20140207
  2. DESAMETASONE FOSFATO HOSPIRA [Concomitant]
     Indication: PREMEDICATION
     Dosage: 20 MILLIGRAM DAILY;
     Route: 042
     Dates: start: 20140207, end: 20140207
  3. TRIMETON [Concomitant]
     Indication: PREMEDICATION
     Dosage: 20 MILLIGRAM DAILY;
     Route: 042
     Dates: start: 20140207, end: 20140207

REACTIONS (5)
  - Syncope [Recovered/Resolved]
  - Choking sensation [Recovered/Resolved]
  - Nausea [Recovered/Resolved]
  - Bone pain [Recovered/Resolved]
  - Vomiting [Recovered/Resolved]
